FAERS Safety Report 8503881-5 (Version None)
Quarter: 2012Q3

REPORT INFORMATION
  Report Type: 
  Country: None (occurrence: None)
  Receive Date: 20120711
  Receipt Date: 20120703
  Transmission Date: 20120928
  Serious: Yes (Hospitalization, Other)
  Sender: FDA-Public Use
  Company Number: US-JNJFOC-20120702350

PATIENT
  Sex: Female
  Weight: 113.4 kg

DRUGS (10)
  1. TOPROL-XL [Suspect]
     Indication: BLOOD PRESSURE
     Dates: start: 20120601
  2. XARELTO [Suspect]
     Indication: CEREBROVASCULAR ACCIDENT PROPHYLAXIS
     Route: 048
     Dates: start: 20120101
  3. TOPROL-XL [Suspect]
     Indication: TACHYCARDIA
     Dates: start: 20120601
  4. NITROGLYCERIN [Concomitant]
     Indication: CHEST PAIN
     Dosage: DOSE REPORTED AS 1-3 TABS WITHIN 15 MINUTES AS NEEDED; IF NO RELIEF GO TO ER
     Route: 060
  5. COREG [Suspect]
     Indication: PRODUCT USED FOR UNKNOWN INDICATION
     Route: 048
     Dates: end: 20120601
  6. XANAX [Concomitant]
     Indication: ANXIETY
     Route: 048
  7. XOPENEX [Concomitant]
     Indication: DYSPNOEA
     Dates: start: 20110901
  8. XARELTO [Suspect]
     Indication: ATRIAL FIBRILLATION
     Route: 048
     Dates: start: 20120101
  9. PERCOCET [Suspect]
     Indication: HEADACHE
     Route: 048
     Dates: start: 20120101
  10. LASIX [Concomitant]
     Indication: CARDIAC FAILURE CONGESTIVE
     Dosage: DOSE ALSO REPORTED AS 2 TABLETS IF 5-7 (LB) WEIGHT GAIN
     Route: 048
     Dates: start: 20100101

REACTIONS (14)
  - HEADACHE [None]
  - INCREASED TENDENCY TO BRUISE [None]
  - ABASIA [None]
  - HEART RATE DECREASED [None]
  - FALL [None]
  - HEAD INJURY [None]
  - SWELLING [None]
  - COUGH [None]
  - SCAR [None]
  - HYPERTENSION [None]
  - TACHYCARDIA [None]
  - CHEST PAIN [None]
  - RESPIRATORY TRACT INFECTION [None]
  - RESPIRATORY RATE DECREASED [None]
